FAERS Safety Report 12726952 (Version 1)
Quarter: 2016Q3

REPORT INFORMATION
  Report Type: Report from Study
  Country: US (occurrence: US)
  Receive Date: 20160909
  Receipt Date: 20160909
  Transmission Date: 20161109
  Serious: Yes (Hospitalization, Other)
  Sender: FDA-Public Use
  Company Number: US-AMGEN-USASL2016119623

PATIENT
  Age: 72 Year
  Sex: Female

DRUGS (1)
  1. ENBREL [Suspect]
     Active Substance: ETANERCEPT
     Indication: RHEUMATOID ARTHRITIS
     Dosage: UNK
     Route: 065

REACTIONS (5)
  - Embolic stroke [Unknown]
  - Speech disorder [Unknown]
  - Arthropathy [Unknown]
  - Arrhythmia [Unknown]
  - Mobility decreased [Unknown]

NARRATIVE: CASE EVENT DATE: 2016
